FAERS Safety Report 4336277-0 (Version None)
Quarter: 2004Q2

REPORT INFORMATION
  Report Type: 
  Country: None (occurrence: None)
  Receive Date: 20040407
  Receipt Date: 20040325
  Transmission Date: 20050107
  Serious: Yes (Hospitalization)
  Sender: FDA-Public Use
  Company Number: USA031253532

PATIENT
  Age: 42 Year
  Sex: Female
  Weight: 52 kg

DRUGS (23)
  1. FORTEO [Suspect]
     Indication: OSTEOPOROSIS
     Dosage: 20 UG/1 DAY
     Dates: start: 20031124
  2. REMICADE [Concomitant]
  3. DILANTIN [Concomitant]
  4. BENTYL [Concomitant]
  5. ULTRASE (PANCRELIPASE) [Concomitant]
  6. ZANTAC [Concomitant]
  7. SYNTHROID [Concomitant]
  8. ZOLOFT [Concomitant]
  9. DRISDOL [Concomitant]
  10. COUMADIN [Concomitant]
  11. PURINETHOL [Concomitant]
  12. VIOXX [Concomitant]
  13. FOSAMAX [Concomitant]
  14. ACTONEL [Concomitant]
  15. SOMA [Concomitant]
  16. VITAMIN B12 FOR INJECTION (CYANOCOBALAMIN) [Concomitant]
  17. DEXTROSE INFUSION FLUID 54% (GLUCOSE) [Concomitant]
  18. DEPO-PROVERA [Concomitant]
  19. PHENERGAN [Concomitant]
  20. DILAUDID [Concomitant]
  21. PROTONIX [Concomitant]
  22. MULTI-VITAMIN [Concomitant]
  23. VITAMIN C [Concomitant]

REACTIONS (9)
  - CATHETER RELATED INFECTION [None]
  - INTRA-ABDOMINAL HAEMORRHAGE [None]
  - MALAISE [None]
  - MEDICATION ERROR [None]
  - OSTEOMYELITIS [None]
  - PANCREATITIS CHRONIC [None]
  - PHARMACEUTICAL PRODUCT COMPLAINT [None]
  - STAPHYLOCOCCAL INFECTION [None]
  - THROMBOSIS [None]
